FAERS Safety Report 4314922-3 (Version None)
Quarter: 2004Q1

REPORT INFORMATION
  Report Type: 
  Country: None (occurrence: None)
  Receive Date: 20040310
  Receipt Date: 20040305
  Transmission Date: 20041129
  Serious: Yes (Hospitalization)
  Sender: FDA-Public Use
  Company Number: WAES 0403USA00652

PATIENT
  Age: 82 Year
  Sex: Male

DRUGS (2)
  1. DIGOXIN [Concomitant]
  2. HYZAAR [Suspect]
     Indication: HYPERTENSION
     Route: 048

REACTIONS (2)
  - CARDIAC FAILURE [None]
  - HYPERKALAEMIA [None]
